FAERS Safety Report 18706651 (Version 1)
Quarter: 2021Q1

REPORT INFORMATION
  Report Type: Spontaneous
  Country: US (occurrence: US)
  Receive Date: 20210106
  Receipt Date: 20210106
  Transmission Date: 20210419
  Serious: No
  Sender: FDA-Public Use
  Company Number: None

PATIENT
  Age: 76 Year
  Sex: Male
  Weight: 125.1 kg

DRUGS (6)
  1. ALIVE MENS ENERGY [Concomitant]
  2. MULTAQ [Concomitant]
     Active Substance: DRONEDARONE
  3. TAFINLAR [Suspect]
     Active Substance: DABRAFENIB MESYLATE
     Indication: MALIGNANT MELANOMA
     Route: 048
     Dates: start: 20201207
  4. GLUCOSAMINE MSM COMPLEX [Concomitant]
  5. ELIQUIS [Concomitant]
     Active Substance: APIXABAN
  6. MEKINIST [Suspect]
     Active Substance: TRAMETINIB DIMETHYL SULFOXIDE
     Indication: MALIGNANT MELANOMA
     Route: 048
     Dates: start: 20201207

REACTIONS (1)
  - Rash [None]

NARRATIVE: CASE EVENT DATE: 20201214
